FAERS Safety Report 17401086 (Version 6)
Quarter: 2021Q4

REPORT INFORMATION
  Report Type: Report from Study
  Country: PL (occurrence: None)
  Receive Date: 20200211
  Receipt Date: 20211105
  Transmission Date: 20220303
  Serious: Yes (Hospitalization)
  Sender: FDA-Public Use
  Company Number: PL-ROCHE-2540905

PATIENT
  Age: 39 Year
  Sex: Male
  Weight: 78 kg

DRUGS (12)
  1. OCRELIZUMAB [Suspect]
     Active Substance: OCRELIZUMAB
     Indication: Relapsing-remitting multiple sclerosis
     Dosage: DAYS 1 AND 15, FOLLOWED BY ONE 600-MG INFUSION DOSE EVERY 24 WEEKS FOR A MAXIMUM OF 8 DOSES THROUGHO
     Route: 042
     Dates: start: 20181217
  2. METHYLPREDNISOLONE [Suspect]
     Active Substance: METHYLPREDNISOLONE
     Indication: Premedication
     Dosage: ONCE BEFORE INFUSION
     Route: 042
     Dates: start: 20181217, end: 20181217
  3. METHYLPREDNISOLONE [Suspect]
     Active Substance: METHYLPREDNISOLONE
     Route: 042
     Dates: start: 20190102, end: 20190102
  4. METHYLPREDNISOLONE [Suspect]
     Active Substance: METHYLPREDNISOLONE
     Route: 042
     Dates: start: 20190614, end: 20190614
  5. METHYLPREDNISOLONE [Suspect]
     Active Substance: METHYLPREDNISOLONE
     Route: 042
     Dates: start: 20200217, end: 20200217
  6. METHYLPREDNISOLONE [Suspect]
     Active Substance: METHYLPREDNISOLONE
     Route: 042
     Dates: start: 20201102, end: 20201102
  7. METHYLPREDNISOLONE [Suspect]
     Active Substance: METHYLPREDNISOLONE
     Route: 042
     Dates: start: 20210430, end: 20210430
  8. METHYLPREDNISOLONE [Suspect]
     Active Substance: METHYLPREDNISOLONE
     Route: 042
     Dates: start: 20211011, end: 20211011
  9. CETIRIZINI DIHYDROCHLORIDUM [Concomitant]
     Indication: Premedication
     Dosage: SUBSEQUENT DOSES ON: 02/JAN/2019, 14/JUN/2019, 17/FEB/2020, 02/NOV/2020, 30/APR/2021, 11/OCT/2021
     Route: 048
     Dates: start: 20181217, end: 20181217
  10. CETIRIZINI DIHYDROCHLORIDUM [Concomitant]
     Route: 048
     Dates: start: 20190102, end: 20190102
  11. CETIRIZINI DIHYDROCHLORIDUM [Concomitant]
     Route: 048
     Dates: start: 20190614, end: 20190614
  12. BETAHISTINE [Concomitant]
     Active Substance: BETAHISTINE
     Indication: Vertigo
     Route: 048
     Dates: start: 20191210

REACTIONS (1)
  - Orchitis [Recovered/Resolved]

NARRATIVE: CASE EVENT DATE: 20200101
